FAERS Safety Report 6129604-5 (Version None)
Quarter: 2009Q1

REPORT INFORMATION
  Report Type: 
  Country: None (occurrence: None)
  Receive Date: 20090324
  Receipt Date: 20090318
  Transmission Date: 20090719
  Serious: Yes (Other)
  Sender: FDA-Public Use
  Company Number: PHHY2009DE09345

PATIENT
  Age: 47 Year
  Sex: Female
  Weight: 86 kg

DRUGS (1)
  1. VOLTAREN [Suspect]
     Indication: ARTHRALGIA
     Dosage: FOR 40 DAYS, DAILY USE, 1 TO 2 TABLET DAILY
     Route: 048
     Dates: start: 20081201, end: 20090301

REACTIONS (1)
  - RESTLESS LEGS SYNDROME [None]
